FAERS Safety Report 8042307 (Version 2)
Quarter: 2013Q2

REPORT INFORMATION
  Report Type: Spontaneous
  Country: US (occurrence: US)
  Receive Date: 20110718
  Receipt Date: 20130503
  Transmission Date: 20140414
  Serious: No
  Sender: FDA-Public Use
  Company Number: US-B.I. PHARMACEUTICALS,INC./RIDGEFIELD-2011-BP-17732BP

PATIENT
  Age: 68 Year
  Sex: Female

DRUGS (12)
  1. PRADAXA [Suspect]
     Indication: ATRIAL FIBRILLATION
     Dosage: 300 MG
     Route: 048
     Dates: start: 2010
  2. DILTIAZEM [Concomitant]
     Indication: ATRIAL FIBRILLATION
     Dosage: 240 MG
     Route: 048
     Dates: start: 201101
  3. COZAAR [Concomitant]
     Indication: HYPERTENSION
     Dosage: 50 MG
     Route: 048
     Dates: start: 2005
  4. ASA [Concomitant]
     Indication: ROUTINE HEALTH MAINTENANCE
     Dosage: 81 MG
     Route: 048
     Dates: start: 1980
  5. LEVOTHYROXINE [Concomitant]
     Indication: HYPOTHYROIDISM
     Dosage: 0.75 MG
     Route: 048
     Dates: start: 1980
  6. ESTROPIPATE [Concomitant]
     Indication: ROUTINE HEALTH MAINTENANCE
     Dosage: 0.75 MG
  7. FLECAINIDE [Concomitant]
     Dosage: 0.5 MG
     Route: 048
     Dates: start: 1980
  8. OMEPRAZOLE [Concomitant]
     Indication: HERNIA
     Dosage: 40 MG
     Route: 048
     Dates: start: 2004
  9. ALPRAZOLAM [Concomitant]
     Indication: ANXIETY
     Dosage: 0.25 MG
     Dates: start: 2009
  10. MAGNESIUM [Concomitant]
     Dosage: 400 MG
     Route: 048
  11. CALCIUM [Concomitant]
     Dosage: 600 MG
     Route: 048
  12. MULTIVITAMIN [Concomitant]
     Route: 048

REACTIONS (5)
  - Arthralgia [Not Recovered/Not Resolved]
  - Joint swelling [Not Recovered/Not Resolved]
  - Throat irritation [Not Recovered/Not Resolved]
  - Dysphonia [Not Recovered/Not Resolved]
  - Dysphagia [Not Recovered/Not Resolved]
